FAERS Safety Report 10707467 (Version 1)
Quarter: 2015Q1

REPORT INFORMATION
  Report Type: Spontaneous
  Country: US (occurrence: None)
  Receive Date: 20150112
  Receipt Date: 20150112
  Transmission Date: 20150721
  Serious: Yes (Death)
  Sender: FDA-Public Use
  Company Number: None

PATIENT
  Age: 48 Year
  Sex: Female
  Weight: 120.3 kg

DRUGS (2)
  1. CYTARABINE. [Suspect]
     Active Substance: CYTARABINE
     Dates: start: 20140830
  2. IDARUBICIN [Suspect]
     Active Substance: IDARUBICIN
     Dates: start: 20140829

REACTIONS (7)
  - Asthenia [None]
  - Respiratory failure [None]
  - Thrombocytopenia [None]
  - Respiratory distress [None]
  - Acute myeloid leukaemia [None]
  - Fatigue [None]
  - Tumour lysis syndrome [None]

NARRATIVE: CASE EVENT DATE: 20140827
